FAERS Safety Report 4983444-9 (Version None)
Quarter: 2006Q2

REPORT INFORMATION
  Report Type: 
  Country: None (occurrence: None)
  Receive Date: 20060419
  Receipt Date: 20060406
  Transmission Date: 20061013
  Serious: Yes (Other)
  Sender: FDA-Public Use
  Company Number: 2006048390

PATIENT
  Age: 51 Year
  Sex: Male
  Weight: 75 kg

DRUGS (2)
  1. CABERGOLINE [Suspect]
     Indication: PARKINSON'S DISEASE
     Dosage: 4 MG (DAILY), ORAL
     Route: 048
     Dates: start: 20041115, end: 20050615
  2. SINEMET [Concomitant]

REACTIONS (4)
  - DIVORCED [None]
  - ECONOMIC PROBLEM [None]
  - HOMELESS [None]
  - PATHOLOGICAL GAMBLING [None]
